FAERS Safety Report 16061818 (Version 1)
Quarter: 2019Q1

REPORT INFORMATION
  Report Type: Spontaneous
  Country: US (occurrence: US)
  Receive Date: 20190312
  Receipt Date: 20190312
  Transmission Date: 20190418
  Serious: No
  Sender: FDA-Public Use
  Company Number: US-PFIZER INC-2019104064

PATIENT
  Age: 83 Year
  Sex: Female
  Weight: 70.75 kg

DRUGS (1)
  1. IBRANCE [Suspect]
     Active Substance: PALBOCICLIB
     Indication: BREAST CANCER STAGE IV
     Dosage: 125 MG, CYCLIC (1 CAPSULE DAILY IN THE MORNING, TOOK IT BREAKFAST)
     Route: 048
     Dates: start: 201708

REACTIONS (2)
  - Blood count abnormal [Not Recovered/Not Resolved]
  - Tumour marker increased [Unknown]

NARRATIVE: CASE EVENT DATE: 20190226
